FAERS Safety Report 10608024 (Version 1)
Quarter: 2014Q4

REPORT INFORMATION
  Report Type: Spontaneous
  Country: US (occurrence: US)
  Receive Date: 20141125
  Receipt Date: 20141125
  Transmission Date: 20150529
  Serious: No
  Sender: FDA-Public Use
  Company Number: US-BRISTOL-MYERS SQUIBB COMPANY-21276225

PATIENT
  Age: 62 Year
  Sex: Female
  Weight: 113.38 kg

DRUGS (2)
  1. LANTUS [Concomitant]
     Active Substance: INSULIN GLARGINE
  2. FARXIGA [Suspect]
     Active Substance: DAPAGLIFLOZIN PROPANEDIOL
     Dates: start: 20140730

REACTIONS (3)
  - Pruritus [Unknown]
  - Dysuria [Unknown]
  - Dizziness [Unknown]

NARRATIVE: CASE EVENT DATE: 20140802
